FAERS Safety Report 10998249 (Version 3)
Quarter: 2015Q2

REPORT INFORMATION
  Report Type: Spontaneous
  Country: FR (occurrence: None)
  Receive Date: 20150406
  Receipt Date: 20150629
  Transmission Date: 20150821
  Serious: Yes (Death, Hospitalization, Other)
  Sender: FDA-Public Use
  Company Number: FR2015GSK040671

PATIENT
  Age: 33 Year
  Sex: Male
  Weight: 50 kg

DRUGS (10)
  1. PARACETAMOL (PARACETAMOL) [Suspect]
     Active Substance: ACETAMINOPHEN
     Indication: BACK PAIN
     Route: 048
     Dates: end: 20150310
  2. RIFATER [Suspect]
     Active Substance: ISONIAZID\PYRAZINAMIDE\RIFAMPIN
     Indication: PERITONEAL TUBERCULOSIS
     Route: 048
     Dates: start: 20141230, end: 20150310
  3. MYAMBUTOL [Suspect]
     Active Substance: ETHAMBUTOL HYDROCHLORIDE
     Indication: LYMPH NODE TUBERCULOSIS
     Dates: start: 20141230
  4. RIFATER [Suspect]
     Active Substance: ISONIAZID\PYRAZINAMIDE\RIFAMPIN
     Indication: LYMPH NODE TUBERCULOSIS
     Route: 048
     Dates: start: 20141230, end: 20150310
  5. KIVEXA [Suspect]
     Active Substance: ABACAVIR SULFATE\LAMIVUDINE
     Indication: HIV INFECTION
     Route: 048
     Dates: start: 20150114, end: 20150310
  6. MYAMBUTOL [Suspect]
     Active Substance: ETHAMBUTOL HYDROCHLORIDE
     Indication: PULMONARY TUBERCULOSIS
     Dates: start: 20141230
  7. TOPALGIC (TRAMADOL HYDROCHLORIDE) [Concomitant]
     Active Substance: TRAMADOL
  8. ISENTRESS [Suspect]
     Active Substance: RALTEGRAVIR POTASSIUM
     Indication: HIV INFECTION
     Route: 048
     Dates: start: 20150114, end: 20150310
  9. BACTRIM [Suspect]
     Active Substance: SULFAMETHOXAZOLE\TRIMETHOPRIM
     Indication: PRODUCT USED FOR UNKNOWN INDICATION
     Dates: start: 20141230
  10. RIFATER [Suspect]
     Active Substance: ISONIAZID\PYRAZINAMIDE\RIFAMPIN
     Indication: PULMONARY TUBERCULOSIS
     Route: 048
     Dates: start: 20141230, end: 20150310

REACTIONS (12)
  - Immune reconstitution inflammatory syndrome [None]
  - Neurological decompensation [None]
  - Hepatitis fulminant [None]
  - Glucose-6-phosphate dehydrogenase deficiency [None]
  - Productive cough [None]
  - Musculoskeletal pain [None]
  - Lactic acidosis [None]
  - Normochromic normocytic anaemia [None]
  - Renal impairment [None]
  - Encephalopathy [None]
  - Proteinuria [None]
  - Seizure [None]

NARRATIVE: CASE EVENT DATE: 20150308
